FAERS Safety Report 9092561 (Version 2)
Quarter: 2013Q1

REPORT INFORMATION
  Report Type: Spontaneous
  Country: GB (occurrence: GB)
  Receive Date: 20130201
  Receipt Date: 20130314
  Transmission Date: 20140127
  Serious: Yes (Other)
  Sender: FDA-Public Use
  Company Number: GB-AMGEN-GBRSP2013006196

PATIENT
  Age: 69 Year
  Sex: 0

DRUGS (2)
  1. NPLATE [Suspect]
     Indication: PRODUCT USED FOR UNKNOWN INDICATION
     Dosage: 500 MUG, QWK
     Dates: start: 20110512
  2. PREDNISONE [Concomitant]

REACTIONS (2)
  - Therapeutic response decreased [Unknown]
  - Platelet count decreased [Unknown]
